FAERS Safety Report 5823340-8 (Version None)
Quarter: 2008Q3

REPORT INFORMATION
  Report Type: 
  Country: None (occurrence: None)
  Receive Date: 20080725
  Receipt Date: 20080721
  Transmission Date: 20090109
  Serious: Yes (Death, Hospitalization)
  Sender: FDA-Public Use
  Company Number: US-AMGEN-US277758

PATIENT
  Sex: Male
  Weight: 45.4 kg

DRUGS (10)
  1. PROCRIT [Suspect]
     Indication: MYELODYSPLASTIC SYNDROME
     Route: 058
     Dates: start: 20060801, end: 20080310
  2. LISINOPRIL [Concomitant]
  3. COREG [Concomitant]
  4. DIGOXIN [Concomitant]
     Dates: start: 20051201, end: 20071201
  5. CELEBREX [Concomitant]
     Dates: start: 20070901, end: 20071201
  6. COLACE [Concomitant]
     Route: 048
  7. REMERON [Concomitant]
     Route: 048
  8. ASPIRIN [Concomitant]
     Route: 048
  9. PROZAC [Concomitant]
     Route: 048
  10. PROTONIX [Concomitant]
     Route: 048

REACTIONS (7)
  - CARDIAC FAILURE CONGESTIVE [None]
  - FAILURE TO THRIVE [None]
  - FALL [None]
  - PELVIC FRACTURE [None]
  - PRESYNCOPE [None]
  - RIB FRACTURE [None]
  - UROSEPSIS [None]
